FAERS Safety Report 16472209 (Version 1)
Quarter: 2019Q2

REPORT INFORMATION
  Report Type: Spontaneous
  Country: DK (occurrence: DK)
  Receive Date: 20190625
  Receipt Date: 20190625
  Transmission Date: 20190711
  Serious: Yes (Other)
  Sender: FDA-Public Use
  Company Number: DK-ACCORD-134809

PATIENT
  Age: 67 Year
  Sex: Male

DRUGS (6)
  1. PREDNISOLONE. [Concomitant]
     Active Substance: PREDNISOLONE
     Indication: ADVERSE DRUG REACTION
     Dosage: STRENGTH: 50 MG.
     Route: 048
     Dates: start: 20180516
  2. DOCETAXEL ACCORD [Suspect]
     Active Substance: DOCETAXEL
     Indication: PROSTATE CANCER
     Dosage: STRENGTH: 20 MG/ML
     Route: 042
     Dates: start: 20180614, end: 20180927
  3. BONYL [Concomitant]
     Active Substance: NAPROXEN
     Indication: PAIN
     Dosage: STRENGTH: 500 MG.
     Route: 048
     Dates: start: 20171213
  4. PANODIL [Concomitant]
     Active Substance: ACETAMINOPHEN
     Indication: PAIN
     Dosage: STRENGTH: 665 MG.
     Route: 048
     Dates: start: 20171213
  5. ZOLEDRONSYRE HOSPIRA [Concomitant]
     Active Substance: ZOLEDRONIC ACID
     Indication: BONE DISORDER
     Dosage: STRENGTH: 4 MG /100 ML.
     Route: 042
     Dates: start: 20181004
  6. MORPHINE [Concomitant]
     Active Substance: MORPHINE
     Indication: PAIN
     Dosage: STRENGTH: 10 MG ELLER 5 MG.
     Route: 048
     Dates: start: 20180116

REACTIONS (2)
  - Ejection fraction decreased [Unknown]
  - Cardiac failure [Unknown]

NARRATIVE: CASE EVENT DATE: 201811
